FAERS Safety Report 6928720-5 (Version None)
Quarter: 2010Q3

REPORT INFORMATION
  Report Type: 
  Country: None (occurrence: None)
  Receive Date: 20100817
  Receipt Date: 20100812
  Transmission Date: 20110219
  Serious: Yes (Hospitalization)
  Sender: FDA-Public Use
  Company Number: B0669610A

PATIENT
  Sex: Male

DRUGS (2)
  1. AMOXICILLIN [Suspect]
     Route: 048
     Dates: start: 20090409, end: 20090414
  2. ACETAMINOPHEN W/ PROPOXYPHENE HCL [Suspect]
     Route: 048
     Dates: start: 20090409, end: 20090414

REACTIONS (14)
  - ACUTE GENERALISED EXANTHEMATOUS PUSTULOSIS [None]
  - EATING DISORDER [None]
  - ERYTHEMA [None]
  - FACE OEDEMA [None]
  - LYMPHADENOPATHY [None]
  - MUCOSAL EROSION [None]
  - PROTEINURIA [None]
  - PRURIGO [None]
  - PURPURA [None]
  - PYREXIA [None]
  - RASH MACULO-PAPULAR [None]
  - RASH PUSTULAR [None]
  - RENAL FAILURE ACUTE [None]
  - SKIN DISCOLOURATION [None]
